FAERS Safety Report 8436005-3 (Version None)
Quarter: 2012Q2

REPORT INFORMATION
  Report Type: 
  Country: None (occurrence: None)
  Receive Date: 20120614
  Receipt Date: 20120609
  Transmission Date: 20120825
  Serious: Yes (Death, Life-Threatening, Hospitalization)
  Sender: FDA-Public Use
  Company Number: RU-SANOFI-AVENTIS-2012SA041020

PATIENT
  Sex: Female

DRUGS (2)
  1. ENOXAPARIN SODIUM [Suspect]
     Indication: THROMBOSIS PROPHYLAXIS
     Route: 058
     Dates: start: 20120101, end: 20120101
  2. CEFOPERAZONE/SULBACTAM [Interacting]
     Route: 042
     Dates: start: 20120101, end: 20120101

REACTIONS (2)
  - DRUG INTERACTION [None]
  - PULMONARY HAEMORRHAGE [None]
